FAERS Safety Report 6757644-1 (Version None)
Quarter: 2010Q2

REPORT INFORMATION
  Report Type: 
  Country: None (occurrence: None)
  Receive Date: 20100602
  Receipt Date: 20100525
  Transmission Date: 20101027
  Serious: Yes (Other)
  Sender: FDA-Public Use
  Company Number: 2010SP020605

PATIENT
  Age: 60 Year
  Sex: Female

DRUGS (8)
  1. SAPHRIS [Suspect]
     Indication: DRUG USE FOR UNKNOWN INDICATION
     Dosage: 10 MG; HS; SL
     Route: 060
  2. TEGRETOL [Concomitant]
  3. BUSPAR [Concomitant]
  4. OMEPRAZOL /00661203/ [Concomitant]
  5. PAXIL [Concomitant]
  6. LEVOTHYROXINE SODIUM [Concomitant]
  7. DURAGESIC-100 [Concomitant]
  8. SKELAXIN [Concomitant]

REACTIONS (6)
  - AGITATION [None]
  - DIZZINESS [None]
  - GAIT DISTURBANCE [None]
  - MOVEMENT DISORDER [None]
  - RETCHING [None]
  - SUDDEN ONSET OF SLEEP [None]
